FAERS Safety Report 15165829 (Version 1)
Quarter: 2018Q3

REPORT INFORMATION
  Report Type: Spontaneous
  Country: US (occurrence: US)
  Receive Date: 20180621
  Receipt Date: 20180621
  Transmission Date: 20181010
  Serious: Yes (Other)
  Sender: FDA-Public Use
  Company Number: None

PATIENT
  Age: 74 Year
  Sex: Male
  Weight: 106 kg

DRUGS (2)
  1. HEPARIN [Suspect]
     Active Substance: HEPARIN SODIUM
     Indication: ANTICOAGULANT THERAPY
     Route: 040
     Dates: start: 20180620, end: 20180620
  2. ANTITHROMBINIII [Concomitant]
     Dates: start: 20180620, end: 20180620

REACTIONS (2)
  - Drug level below therapeutic [None]
  - Therapy partial responder [None]

NARRATIVE: CASE EVENT DATE: 20180620
